FAERS Safety Report 11976534 (Version 1)
Quarter: 2016Q1

REPORT INFORMATION
  Report Type: Report from Study
  Country: BR (occurrence: BR)
  Receive Date: 20160129
  Receipt Date: 20160129
  Transmission Date: 20160526
  Serious: Yes (Hospitalization, Other)
  Sender: FDA-Public Use
  Company Number: BR-BAYER-2016-013454

PATIENT
  Age: 56 Year
  Sex: Male

DRUGS (2)
  1. NEXAVAR [Suspect]
     Active Substance: SORAFENIB
     Indication: HEPATIC CANCER METASTATIC
     Dosage: 2 DF, BID
     Route: 048
     Dates: start: 20151223, end: 20160115
  2. NEXAVAR [Suspect]
     Active Substance: SORAFENIB
     Indication: METASTASES TO BONE

REACTIONS (8)
  - Coordination abnormal [Not Recovered/Not Resolved]
  - Disorientation [None]
  - Back pain [Recovering/Resolving]
  - Musculoskeletal chest pain [Recovering/Resolving]
  - Aphasia [Recovered/Resolved]
  - Tremor [Not Recovered/Not Resolved]
  - Confusional state [None]
  - Hypertension [Unknown]

NARRATIVE: CASE EVENT DATE: 20151223
